FAERS Safety Report 21647272 (Version 1)
Quarter: 2022Q4

REPORT INFORMATION
  Report Type: Spontaneous
  Country: US (occurrence: US)
  Receive Date: 20221127
  Receipt Date: 20221127
  Transmission Date: 20230113
  Serious: No
  Sender: FDA-Public Use
  Company Number: US-GSK-US2022173938

PATIENT
  Sex: Male

DRUGS (2)
  1. BREO ELLIPTA [Suspect]
     Active Substance: FLUTICASONE FUROATE\VILANTEROL TRIFENATATE
     Indication: COVID-19
     Dosage: UNK UNK, QD (200/25 MCG)
  2. INCRUSE ELLIPTA [Suspect]
     Active Substance: UMECLIDINIUM BROMIDE
     Indication: COVID-19
     Dosage: 62.5 MG, QD

REACTIONS (1)
  - Off label use [Unknown]
